FAERS Safety Report 15316737 (Version 2)
Quarter: 2018Q4

REPORT INFORMATION
  Report Type: Spontaneous
  Country: US (occurrence: US)
  Receive Date: 20180824
  Receipt Date: 20181116
  Transmission Date: 20190204
  Serious: Yes (Other)
  Sender: FDA-Public Use
  Company Number: US-SA-2018SA232484

PATIENT
  Age: 64 Year
  Sex: Female

DRUGS (2)
  1. DUPIXENT [Suspect]
     Active Substance: DUPILUMAB
     Dosage: 300 MG, QOW
     Route: 058
     Dates: start: 20180811
  2. DUPIXENT [Suspect]
     Active Substance: DUPILUMAB
     Indication: DERMATITIS ATOPIC
     Dosage: 600 MG, 1X
     Route: 058
     Dates: start: 20180727, end: 20180727

REACTIONS (18)
  - Dizziness [Unknown]
  - Head discomfort [Recovered/Resolved]
  - Dermatitis [Not Recovered/Not Resolved]
  - Pruritus [Recovered/Resolved]
  - Hypersensitivity [Unknown]
  - Sinusitis [Unknown]
  - Headache [Unknown]
  - Pain of skin [Recovered/Resolved]
  - Abdominal discomfort [Unknown]
  - Skin plaque [Recovered/Resolved]
  - Heart rate increased [Recovered/Resolved]
  - Alopecia [Recovering/Resolving]
  - Pollakiuria [Unknown]
  - Diarrhoea [Unknown]
  - Hyperhidrosis [Unknown]
  - Gastrointestinal pain [Recovered/Resolved]
  - Heart rate increased [Recovered/Resolved]
  - Gastrooesophageal reflux disease [Recovering/Resolving]

NARRATIVE: CASE EVENT DATE: 20180727
